FAERS Safety Report 7308932-1 (Version None)
Quarter: 2011Q1

REPORT INFORMATION
  Report Type: 
  Country: None (occurrence: None)
  Receive Date: 20110211
  Receipt Date: 20110111
  Transmission Date: 20110831
  Serious: Yes (Other)
  Sender: FDA-Public Use
  Company Number: 2010003343

PATIENT
  Age: 77 Year
  Sex: Male

DRUGS (14)
  1. VITAMIN D [Concomitant]
  2. ULTRAVIST 300 [Concomitant]
  3. INSPRA [Concomitant]
  4. TAMSULOSIN HCL [Concomitant]
  5. ASPIRIN (ACETYLSALICYLIC ACID) [Concomitant]
  6. FOLIC ACID [Concomitant]
  7. LEVOTHYROXINE SODIUM [Concomitant]
  8. SORAFENIB [Suspect]
     Indication: HEPATIC NEOPLASM MALIGNANT
     Dosage: (400 MG,BID),ORAL ; 400 MG,BID),ORAL
     Route: 048
     Dates: start: 20100715, end: 20100801
  9. SORAFENIB [Suspect]
     Indication: HEPATIC NEOPLASM MALIGNANT
     Dosage: (400 MG,BID),ORAL ; 400 MG,BID),ORAL
     Route: 048
     Dates: start: 20100627, end: 20100706
  10. IKAPRESS (VERAPAMIL HYDROCHLORIDE) [Concomitant]
  11. ERLOTINIB HYDROCHLORIDE [Suspect]
     Indication: HEPATIC NEOPLASM MALIGNANT
     Dosage: (150 MG,QD),ORAL ; (400 MG,BID),ORAL
     Route: 048
     Dates: start: 20100627, end: 20100706
  12. ERLOTINIB HYDROCHLORIDE [Suspect]
     Indication: HEPATIC NEOPLASM MALIGNANT
     Dosage: (150 MG,QD),ORAL ; (400 MG,BID),ORAL
     Route: 048
     Dates: start: 20100715, end: 20100801
  13. CALCIUM (CALCIUM) [Concomitant]
  14. TELEBRIX GASTRO [Concomitant]

REACTIONS (2)
  - PYREXIA [None]
  - UVEITIS [None]
